FAERS Safety Report 6175372-0 (Version None)
Quarter: 2009Q2

REPORT INFORMATION
  Report Type: 
  Country: None (occurrence: None)
  Receive Date: 20090430
  Receipt Date: 20090422
  Transmission Date: 20091009
  Serious: Yes (Hospitalization)
  Sender: FDA-Public Use
  Company Number: JP-MERCK-0904USA04156

PATIENT
  Age: 60 Year
  Sex: Female

DRUGS (5)
  1. SINGULAIR [Suspect]
     Indication: ASTHMA
     Route: 048
     Dates: start: 20070927, end: 20081118
  2. PULMICORT-100 [Concomitant]
     Indication: ASTHMA
  3. PREDONINE [Concomitant]
     Indication: OEDEMA
     Route: 048
     Dates: start: 20081219
  4. PREDONINE [Concomitant]
     Route: 048
  5. TAKEPRON [Concomitant]
     Route: 048
     Dates: start: 20081219

REACTIONS (3)
  - HEPATIC FUNCTION ABNORMAL [None]
  - NEPHROTIC SYNDROME [None]
  - OEDEMA [None]
